FAERS Safety Report 7108563-2 (Version None)
Quarter: 2010Q4

REPORT INFORMATION
  Report Type: 
  Country: None (occurrence: None)
  Receive Date: 20101117
  Receipt Date: 20101028
  Transmission Date: 20110411
  Serious: No
  Sender: FDA-Public Use
  Company Number: A0881674A

PATIENT
  Sex: Male

DRUGS (1)
  1. VOTRIENT [Suspect]
     Dosage: 800MG PER DAY
     Route: 048
     Dates: start: 20100909

REACTIONS (3)
  - DECREASED APPETITE [None]
  - DIARRHOEA [None]
  - THERAPEUTIC RESPONSE UNEXPECTED [None]
